FAERS Safety Report 21327217 (Version 1)
Quarter: 2022Q3

REPORT INFORMATION
  Report Type: Spontaneous
  Country: FI (occurrence: FI)
  Receive Date: 20220913
  Receipt Date: 20220913
  Transmission Date: 20221027
  Serious: Yes (Other)
  Sender: FDA-Public Use
  Company Number: FI-JNJFOC-20210855766

PATIENT
  Age: 29 Year
  Sex: Male

DRUGS (1)
  1. STELARA [Suspect]
     Active Substance: USTEKINUMAB
     Indication: Inflammatory bowel disease
     Route: 058
     Dates: start: 20200109

REACTIONS (1)
  - Seminoma [Recovering/Resolving]

NARRATIVE: CASE EVENT DATE: 20210701
